FAERS Safety Report 6290605-8 (Version None)
Quarter: 2009Q3

REPORT INFORMATION
  Report Type: 
  Country: None (occurrence: None)
  Receive Date: 20090730
  Receipt Date: 20090723
  Transmission Date: 20100115
  Serious: Yes (Hospitalization)
  Sender: FDA-Public Use
  Company Number: US-JNJFOC-20090708112

PATIENT
  Sex: Female
  Weight: 63.5 kg

DRUGS (7)
  1. DURAGESIC-100 [Suspect]
     Dosage: 125 UG/HR+25 UG/HR 1 EVERY 48 HOURS
     Route: 062
  2. DURAGESIC-100 [Suspect]
     Dosage: 100 UG/HR 2 EVERY 48 HOURS
     Route: 062
  3. DURAGESIC-100 [Suspect]
     Indication: BACK PAIN
     Route: 062
  4. LYRICA [Concomitant]
     Indication: COMPLEX REGIONAL PAIN SYNDROME
     Route: 048
  5. BACLOFEN [Concomitant]
     Indication: MUSCLE SPASMS
     Route: 048
  6. LUNESTA [Concomitant]
     Indication: INSOMNIA
     Dosage: AT BED TIME
     Route: 048
  7. ROXICODONE [Concomitant]
     Indication: BACK PAIN
     Route: 048

REACTIONS (6)
  - DEVICE ADHESION ISSUE [None]
  - HOT FLUSH [None]
  - INCORRECT DRUG ADMINISTRATION DURATION [None]
  - SOMNOLENCE [None]
  - SPONDYLOLISTHESIS [None]
  - WRONG TECHNIQUE IN DRUG USAGE PROCESS [None]
